FAERS Safety Report 8839746 (Version 2)
Quarter: 2013Q1

REPORT INFORMATION
  Report Type: Report from Study
  Country: JP (occurrence: JP)
  Receive Date: 20121015
  Receipt Date: 20130117
  Transmission Date: 20140127
  Serious: Yes (Other)
  Sender: FDA-Public Use
  Company Number: JP-VERTEX PHARMACEUTICAL INC.-AE-2012-010111

PATIENT
  Age: 62 Year
  Sex: Male

DRUGS (12)
  1. VX-950 (TELAPREVIR) [Suspect]
     Indication: CHRONIC HEPATITIS C
     Dosage: 2250 MG, QD
     Route: 048
     Dates: start: 20120410, end: 20120603
  2. VX-950 (TELAPREVIR) [Suspect]
     Dosage: 1500 MG, QD
     Route: 048
     Dates: start: 20120604, end: 20120703
  3. RIBAVIRIN [Suspect]
     Indication: CHRONIC HEPATITIS C
     Dosage: 600 MG, QD
     Route: 048
     Dates: start: 20120410, end: 20120501
  4. RIBAVIRIN [Suspect]
     Dosage: 200 MG, QD
     Route: 048
     Dates: start: 20120502, end: 20120924
  5. PEGINTERFERON ALFA-2B [Suspect]
     Indication: CHRONIC HEPATITIS C
     Dosage: 1.5 ?G/KG, QW
     Route: 058
     Dates: start: 20120410, end: 20120924
  6. HUMALOG N [Concomitant]
     Dosage: 4 DF, UNK
     Route: 058
  7. BASEN [Concomitant]
     Dosage: 0.6 MG, UNK
     Route: 048
  8. JANUVIA [Concomitant]
     Dosage: 25 MG, QD
     Route: 048
  9. HUMALOG MIX [Concomitant]
     Dosage: 23 DF, QD
     Route: 058
  10. PROMAC                             /01312301/ [Concomitant]
     Dosage: 150 MG, QD
     Route: 048
     Dates: start: 20120410
  11. TOUGHMAC E [Concomitant]
     Dosage: 3 DF, UNK
     Route: 048
     Dates: start: 20120410
  12. NEXIUM                             /01479302/ [Concomitant]
     Dosage: 20 MG, QD
     Route: 048
     Dates: start: 20120620

REACTIONS (1)
  - Rash [Recovered/Resolved]
